FAERS Safety Report 5195627-6 (Version None)
Quarter: 2006Q4

REPORT INFORMATION
  Report Type: 
  Country: None (occurrence: None)
  Receive Date: 20061226
  Receipt Date: 20061226
  Transmission Date: 20070319
  Serious: Yes (Hospitalization, Other)
  Sender: FDA-Public Use
  Company Number: None

PATIENT
  Sex: Male
  Weight: 83.9154 kg

DRUGS (2)
  1. LEXAPRO [Suspect]
     Indication: ANXIETY
     Dosage: 10 MG   DAILY   PO
     Route: 048
  2. LEXAPRO [Suspect]
     Dosage: 5 MG  DAILY  PO
     Route: 048

REACTIONS (3)
  - GRAND MAL CONVULSION [None]
  - MUSCLE INJURY [None]
  - MUSCULOSKELETAL DISORDER [None]
